FAERS Safety Report 7200732-6 (Version None)
Quarter: 2010Q4

REPORT INFORMATION
  Report Type: 
  Country: None (occurrence: None)
  Receive Date: 20101228
  Receipt Date: 20101217
  Transmission Date: 20110411
  Serious: Yes (Death, Hospitalization)
  Sender: FDA-Public Use
  Company Number: US-ROCHE-589337

PATIENT
  Age: 59 Year
  Sex: Female
  Weight: 50 kg

DRUGS (3)
  1. BEVACIZUMAB [Suspect]
     Dosage: DOSE FORM: INJECTION FOR INFUSION. (DAILY DOSE: 5MG/KG DAYS 1 + 15)
     Route: 042
     Dates: start: 20080225
  2. BEVACIZUMAB [Suspect]
     Dosage: DOSE DECREASED.
     Route: 042
     Dates: start: 20080403
  3. ERLOTINIB [Suspect]
     Dosage: DOSE FREQUENCY: QD. LAST DOSE RECEIVED 08 APRIL 2008. DRUG: ERLOTINIB HCL
     Route: 048
     Dates: start: 20080225, end: 20080408

REACTIONS (7)
  - ABDOMINAL PAIN [None]
  - ALANINE AMINOTRANSFERASE INCREASED [None]
  - BILIARY TRACT DISORDER [None]
  - BLOOD ALKALINE PHOSPHATASE INCREASED [None]
  - BLOOD BILIRUBIN INCREASED [None]
  - DEATH [None]
  - GAMMA-GLUTAMYLTRANSFERASE INCREASED [None]
